FAERS Safety Report 9998812 (Version 1)
Quarter: 2014Q1

REPORT INFORMATION
  Report Type: Spontaneous
  Country: US (occurrence: US)
  Receive Date: 20140312
  Receipt Date: 20140312
  Transmission Date: 20141002
  Serious: No
  Sender: FDA-Public Use
  Company Number: US-BIOGENIDEC-2014BI020128

PATIENT
  Age: 56 Year
  Sex: Male

DRUGS (9)
  1. TECFIDERA [Suspect]
     Indication: MULTIPLE SCLEROSIS
     Route: 048
  2. ALVESCO [Concomitant]
  3. ASPIRIN ADULT LOW STRENGTH [Concomitant]
  4. AVODART [Concomitant]
  5. AZELASTINE HCL [Concomitant]
  6. LIPITOR [Concomitant]
  7. MIRTAPAZINE [Concomitant]
  8. NAMENDA [Concomitant]
  9. PANTOPRAZOLE SODIUM [Concomitant]

REACTIONS (1)
  - Back pain [Unknown]
